FAERS Safety Report 13486156 (Version 1)
Quarter: 2017Q2

REPORT INFORMATION
  Report Type: Spontaneous
  Country: US (occurrence: US)
  Receive Date: 20170426
  Receipt Date: 20170426
  Transmission Date: 20170830
  Serious: Yes (Disabling)
  Sender: FDA-Public Use
  Company Number: None

PATIENT
  Age: 65 Year
  Sex: Male
  Weight: 85.5 kg

DRUGS (3)
  1. ZICAM (HOMEOPATHICS) [Suspect]
     Active Substance: HOMEOPATHICS
     Indication: VIRAL UPPER RESPIRATORY TRACT INFECTION
     Dosage: ?          QUANTITY:20 SWAB;OTHER ROUTE:NOSE?
     Route: 045
     Dates: start: 20170105, end: 20170108
  2. BENECAR [Concomitant]
  3. PRILOSEC [Concomitant]
     Active Substance: OMEPRAZOLE MAGNESIUM

REACTIONS (1)
  - Ageusia [None]

NARRATIVE: CASE EVENT DATE: 20170105
